FAERS Safety Report 6508852-6 (Version None)
Quarter: 2009Q4

REPORT INFORMATION
  Report Type: 
  Country: None (occurrence: None)
  Receive Date: 20091221
  Receipt Date: 20090810
  Transmission Date: 20100525
  Serious: No
  Sender: FDA-Public Use
  Company Number: US-ASTRAZENECA-2009SE07606

PATIENT
  Sex: Male

DRUGS (14)
  1. CRESTOR [Suspect]
     Route: 048
  2. TRICOR [Suspect]
     Indication: BLOOD CHOLESTEROL INCREASED
     Dates: end: 20060101
  3. TRICOR [Suspect]
     Indication: BLOOD TRIGLYCERIDES INCREASED
     Dates: end: 20060101
  4. LIPITOR [Suspect]
  5. ZOCOR [Suspect]
  6. ZETIA [Suspect]
  7. NICOTINIC ACID [Concomitant]
  8. PAROXETINE HYDROCHLORIDE [Concomitant]
  9. ACETYLSALICYLIC ACID [Concomitant]
  10. ALPRAZOLAM [Concomitant]
  11. LORATADINE [Concomitant]
  12. RANITIDINE [Concomitant]
  13. ATENOLOL [Concomitant]
  14. FLUTICASONE PROPIONATE [Concomitant]

REACTIONS (2)
  - ABASIA [None]
  - ARTHRALGIA [None]
